FAERS Safety Report 6237091-1 (Version None)
Quarter: 2009Q2

REPORT INFORMATION
  Report Type: 
  Country: None (occurrence: None)
  Receive Date: 20090619
  Receipt Date: 20090403
  Transmission Date: 20091009
  Serious: No
  Sender: FDA-Public Use
  Company Number: US-ASTRAZENECA-2009UW08521

PATIENT
  Age: 27721 Day
  Sex: Female
  Weight: 60.3 kg

DRUGS (3)
  1. SYMBICORT [Suspect]
     Indication: ASTHMA
     Route: 055
     Dates: start: 20090331, end: 20090331
  2. VENTOLIN [Concomitant]
     Indication: ASTHMA
     Route: 055
     Dates: start: 20090101
  3. CLONIDINE [Concomitant]
     Indication: BLOOD PRESSURE
     Dosage: .075 MG BID
     Route: 048
     Dates: start: 20090101

REACTIONS (1)
  - SWELLING [None]
